FAERS Safety Report 5920141-7 (Version None)
Quarter: 2008Q4

REPORT INFORMATION
  Report Type: 
  Country: None (occurrence: None)
  Receive Date: 20081016
  Receipt Date: 20081008
  Transmission Date: 20090506
  Serious: Yes (Hospitalization, Other)
  Sender: FDA-Public Use
  Company Number: BR-BAYER-BR-2007-007926

PATIENT
  Age: 35 Year
  Sex: Female

DRUGS (1)
  1. BETAFERON [Suspect]
     Indication: MULTIPLE SCLEROSIS
     Route: 058
     Dates: start: 20061101, end: 20070304

REACTIONS (10)
  - AMENORRHOEA [None]
  - DIABETES MELLITUS [None]
  - FACIAL PARESIS [None]
  - HEADACHE [None]
  - HEMIPLEGIA [None]
  - HYPERTENSION [None]
  - INJECTION SITE PAIN [None]
  - NAUSEA [None]
  - TACHYCARDIA [None]
  - WEIGHT INCREASED [None]
